FAERS Safety Report 7962585-8 (Version None)
Quarter: 2011Q4

REPORT INFORMATION
  Report Type: 
  Country: None (occurrence: None)
  Receive Date: 20111207
  Receipt Date: 20111202
  Transmission Date: 20120403
  Serious: Yes (Death)
  Sender: FDA-Public Use
  Company Number: US-CEPHALON-2011006075

PATIENT
  Sex: Male

DRUGS (1)
  1. TREANDA [Suspect]
     Indication: LEUKAEMIA
     Route: 042
     Dates: start: 20110603, end: 20110902

REACTIONS (1)
  - DEATH [None]
